FAERS Safety Report 8131155-3 (Version None)
Quarter: 2012Q1

REPORT INFORMATION
  Report Type: 
  Country: None (occurrence: None)
  Receive Date: 20120209
  Receipt Date: 20120209
  Transmission Date: 20120608
  Serious: Yes (Other)
  Sender: FDA-Public Use
  Company Number: None

PATIENT
  Sex: Female
  Weight: 44.9061 kg

DRUGS (8)
  1. BUPROPION HCL [Suspect]
     Indication: ANXIETY
     Dosage: DAILY P.O.
     Route: 048
     Dates: start: 20120101
  2. BUPROPION HCL [Suspect]
     Indication: DEPRESSION
     Dosage: DAILY P.O.
     Route: 048
     Dates: start: 20120101
  3. BUPROPION HCL [Suspect]
     Indication: TOURETTE'S DISORDER
     Dosage: DAILY P.O.
     Route: 048
     Dates: start: 20120101
  4. BUPROPION HCL [Suspect]
     Indication: OBSESSIVE-COMPULSIVE DISORDER
     Dosage: DAILY P.O.
     Route: 048
     Dates: start: 20120101
  5. BUPROPION HCL [Suspect]
     Indication: ANXIETY
     Dosage: DAILY P.O.
     Route: 048
     Dates: start: 20120131
  6. BUPROPION HCL [Suspect]
     Indication: DEPRESSION
     Dosage: DAILY P.O.
     Route: 048
     Dates: start: 20120131
  7. BUPROPION HCL [Suspect]
     Indication: TOURETTE'S DISORDER
     Dosage: DAILY P.O.
     Route: 048
     Dates: start: 20120131
  8. BUPROPION HCL [Suspect]
     Indication: OBSESSIVE-COMPULSIVE DISORDER
     Dosage: DAILY P.O.
     Route: 048
     Dates: start: 20120131

REACTIONS (7)
  - DECREASED APPETITE [None]
  - PRODUCT SUBSTITUTION ISSUE [None]
  - DEPRESSION [None]
  - HEADACHE [None]
  - ANXIETY [None]
  - NAUSEA [None]
  - ABDOMINAL PAIN [None]
